FAERS Safety Report 8811959 (Version 3)
Quarter: 2012Q4

REPORT INFORMATION
  Report Type: 
  Country: US (occurrence: US)
  Receive Date: 20120927
  Receipt Date: 20121224
  Transmission Date: 20130627
  Serious: Yes (Hospitalization, Other)
  Sender: FDA-Public Use
  Company Number: US-009507513-1111USA03907

PATIENT

DRUGS (8)
  1. FOSAMAX [Suspect]
     Indication: OSTEOPOROSIS
     Dosage: 70 mg, qw
     Route: 048
     Dates: end: 20110510
  2. FOSAMAX [Suspect]
     Indication: OSTEOPENIA
     Dosage: 10 mg, qd
     Route: 048
     Dates: start: 19970728
  3. FOSAMAX [Suspect]
     Indication: OSTEOPOROSIS
     Dosage: 70 mg, qw
     Route: 048
     Dates: start: 200803, end: 201105
  4. VASOTEC [Concomitant]
     Indication: HYPERTENSION
     Dosage: 10 mg, qd
     Dates: start: 199411
  5. CALCIUM (UNSPECIFIED) [Concomitant]
     Dosage: UNK, qd
     Dates: start: 19970728
  6. PREMARIN [Concomitant]
     Dosage: 0.625 mg, UNK
     Dates: start: 19970728
  7. VITAMIN D (UNSPECIFIED) [Concomitant]
  8. CALCITONIN [Concomitant]
     Dosage: 1 spray qd alternate nostril
     Dates: start: 20050124

REACTIONS (19)
  - Femur fracture [Unknown]
  - Intramedullary rod insertion [Unknown]
  - Surgery [Unknown]
  - Fracture nonunion [Unknown]
  - Pain [Unknown]
  - Gait disturbance [Unknown]
  - Nasopharyngitis [Unknown]
  - Increased tendency to bruise [Unknown]
  - Seborrhoeic dermatitis [Unknown]
  - Lower limb fracture [Unknown]
  - Upper limb fracture [Unknown]
  - Cholelithiasis [Unknown]
  - Closed fracture manipulation [Unknown]
  - Hyperlipidaemia [Unknown]
  - Hyperglycaemia [Unknown]
  - Varicophlebitis [Unknown]
  - Pharyngitis [Unknown]
  - Cough [Unknown]
  - Arthralgia [Unknown]
